FAERS Safety Report 7727850-8 (Version None)
Quarter: 2011Q3

REPORT INFORMATION
  Report Type: 
  Country: None (occurrence: None)
  Receive Date: 20110905
  Receipt Date: 20110826
  Transmission Date: 20111222
  Serious: No
  Sender: FDA-Public Use
  Company Number: US-BIOGENIDEC-2011BI000769

PATIENT
  Sex: Male

DRUGS (1)
  1. TYSABRI [Suspect]
     Indication: MULTIPLE SCLEROSIS
     Route: 042
     Dates: start: 20100211

REACTIONS (7)
  - PERIPHERAL COLDNESS [None]
  - SENSORY DISTURBANCE [None]
  - HYPOAESTHESIA [None]
  - COORDINATION ABNORMAL [None]
  - MUSCLE SPASMS [None]
  - BONE PAIN [None]
  - FATIGUE [None]
